FAERS Safety Report 9471200 (Version 1)
Quarter: 2013Q3

REPORT INFORMATION
  Report Type: Spontaneous
  Country: CH (occurrence: CH)
  Receive Date: 20130822
  Receipt Date: 20130822
  Transmission Date: 20140515
  Serious: Yes (Hospitalization)
  Sender: FDA-Public Use
  Company Number: CH-BAYER-2013-100799

PATIENT
  Age: 76 Year
  Sex: Male
  Weight: 64 kg

DRUGS (11)
  1. ASPIRIN [Suspect]
     Indication: CARDIAC DISORDER
     Dosage: UNK
     Route: 048
  2. CIPROXIN [Suspect]
     Indication: SKIN INFECTION
     Dosage: UNK
     Dates: start: 2013
  3. DALACIN [CLINDAMYCIN HYDROCHLORIDE] [Suspect]
     Indication: SKIN INFECTION
     Dosage: UNK
     Dates: start: 2013
  4. TASIGNA [Suspect]
     Indication: CHRONIC MYELOID LEUKAEMIA
     Dosage: DAILY DOSE 600 MG
     Route: 048
     Dates: start: 20090722, end: 20091014
  5. TASIGNA [Suspect]
     Indication: CHRONIC MYELOID LEUKAEMIA
     Dosage: DAILY DOSE 800 MG
     Dates: start: 20091014, end: 20100413
  6. TASIGNA [Suspect]
     Indication: CHRONIC MYELOID LEUKAEMIA
     Dosage: DAILY DOSE 450 MG
     Dates: start: 20100414, end: 20110515
  7. TASIGNA [Suspect]
     Indication: CHRONIC MYELOID LEUKAEMIA
     Dosage: DAILY DOSE 400 MG
     Dates: start: 20110516, end: 20111013
  8. TASIGNA [Suspect]
     Indication: CHRONIC MYELOID LEUKAEMIA
     Dosage: UNK
     Dates: start: 20111014, end: 20121210
  9. LOSARTAN POTASSIUM W/HYDROCHLOROTHIAZIDE [Concomitant]
     Dosage: 100 MG, QD
     Route: 048
  10. MARCOUMAR [Concomitant]
     Dosage: 1 DF, PRN
     Route: 048
  11. NEBILET [Concomitant]
     Dosage: 5 MG, QD
     Route: 048

REACTIONS (3)
  - Peripheral vascular disorder [Not Recovered/Not Resolved]
  - Skin necrosis [Not Recovered/Not Resolved]
  - Petechiae [Not Recovered/Not Resolved]
